FAERS Safety Report 23914025 (Version 1)
Quarter: 2024Q2

REPORT INFORMATION
  Report Type: Spontaneous
  Country: US (occurrence: US)
  Receive Date: 20240529
  Receipt Date: 20240529
  Transmission Date: 20240716
  Serious: Yes (Hospitalization, Other)
  Sender: FDA-Public Use
  Company Number: US-MLMSERVICE-20240513-PI058894-00050-1

PATIENT

DRUGS (1)
  1. AMLODIPINE [Suspect]
     Active Substance: AMLODIPINE BESYLATE
     Indication: Product used for unknown indication
     Dosage: OVERDOSE
     Route: 048

REACTIONS (4)
  - Haemodynamic instability [Recovering/Resolving]
  - Hypervolaemia [Recovering/Resolving]
  - Circulatory collapse [Recovering/Resolving]
  - Intentional overdose [Recovering/Resolving]
